FAERS Safety Report 10135161 (Version 3)
Quarter: 2014Q3

REPORT INFORMATION
  Report Type: Spontaneous
  Country: US (occurrence: US)
  Receive Date: 20140428
  Receipt Date: 20140729
  Transmission Date: 20150326
  Serious: Yes (Hospitalization, Other)
  Sender: FDA-Public Use
  Company Number: US-GILEAD-2014-0100882

PATIENT
  Age: 51 Year
  Sex: Female

DRUGS (5)
  1. REVATIO [Concomitant]
     Active Substance: SILDENAFIL CITRATE
  2. PREDNISONE. [Concomitant]
     Active Substance: PREDNISONE
  3. LETAIRIS [Suspect]
     Active Substance: AMBRISENTAN
     Indication: PULMONARY HYPERTENSION
     Dosage: 5 MG, QD
     Route: 065
     Dates: start: 20140405
  4. LETAIRIS [Suspect]
     Active Substance: AMBRISENTAN
     Indication: CARDIAC VALVE DISEASE
  5. LEVAQUIN [Concomitant]
     Active Substance: LEVOFLOXACIN

REACTIONS (9)
  - Swollen tongue [Unknown]
  - Chronic obstructive pulmonary disease [Unknown]
  - Glossodynia [Unknown]
  - Bronchitis [Unknown]
  - Malaise [Unknown]
  - Respiratory tract congestion [Unknown]
  - Dyspnoea [Unknown]
  - Speech disorder [Unknown]
  - Hysterectomy [Unknown]

NARRATIVE: CASE EVENT DATE: 20140414
